FAERS Safety Report 7993520-4 (Version None)
Quarter: 2011Q4

REPORT INFORMATION
  Report Type: 
  Country: None (occurrence: None)
  Receive Date: 20111219
  Receipt Date: 20111214
  Transmission Date: 20120403
  Serious: Yes (Other)
  Sender: FDA-Public Use
  Company Number: US-ABBOTT-11P-163-0860538-00

PATIENT
  Sex: Male

DRUGS (2)
  1. HUMIRA [Suspect]
     Indication: CROHN'S DISEASE
     Dates: start: 20110401
  2. PREDNISONE TAB [Concomitant]
     Indication: INFLAMMATION
     Dosage: DAILY, TAPERING OFF

REACTIONS (3)
  - DRUG INEFFECTIVE [None]
  - LARGE INTESTINE OPERATION [None]
  - INTESTINAL OBSTRUCTION [None]
